FAERS Safety Report 14477412 (Version 1)
Quarter: 2018Q1

REPORT INFORMATION
  Report Type: Report from Study
  Country: US (occurrence: US)
  Receive Date: 20180201
  Receipt Date: 20180201
  Transmission Date: 20180509
  Serious: No
  Sender: FDA-Public Use
  Company Number: US-EXELIXIS-CABO-17010804

PATIENT
  Sex: Male

DRUGS (11)
  1. SENNA [Concomitant]
     Active Substance: SENNA LEAF\SENNOSIDES\SENNOSIDES A AND B
  2. ROBAXIN [Concomitant]
     Active Substance: METHOCARBAMOL
  3. CABOMETYX [Suspect]
     Active Substance: CABOZANTINIB S-MALATE
     Indication: RENAL CANCER
     Dosage: 60 MG, QD
     Route: 048
     Dates: start: 20170709
  4. INJECTAFER [Concomitant]
     Active Substance: FERRIC CARBOXYMALTOSE
  5. ZOMETA [Concomitant]
     Active Substance: ZOLEDRONIC ACID
  6. MIRALAX [Concomitant]
     Active Substance: POLYETHYLENE GLYCOL 3350
  7. NORCO [Concomitant]
     Active Substance: ACETAMINOPHEN\HYDROCODONE BITARTRATE
  8. TRAMADOL. [Concomitant]
     Active Substance: TRAMADOL
  9. COLACE [Concomitant]
     Active Substance: DOCUSATE SODIUM
  10. LACTULOSE. [Concomitant]
     Active Substance: LACTULOSE
  11. TAMSULOSIN [Concomitant]
     Active Substance: TAMSULOSIN

REACTIONS (1)
  - Gout [Unknown]
